FAERS Safety Report 15478295 (Version 1)
Quarter: 2018Q4

REPORT INFORMATION
  Report Type: Spontaneous
  Country: US (occurrence: US)
  Receive Date: 20181009
  Receipt Date: 20181009
  Transmission Date: 20190205
  Serious: No
  Sender: FDA-Public Use
  Company Number: US-SA-2018SA272897

PATIENT
  Age: 45 Year
  Sex: Female

DRUGS (8)
  1. DUPIXENT [Suspect]
     Active Substance: DUPILUMAB
     Indication: DERMATITIS ATOPIC
     Dosage: 300 MG, QOW
     Route: 058
     Dates: start: 20180903
  2. CLOBETASOL [Concomitant]
     Active Substance: CLOBETASOL
  3. TRIAMCINOLONE [Concomitant]
     Active Substance: TRIAMCINOLONE
  4. MOMETASONE [Concomitant]
     Active Substance: MOMETASONE
  5. DEXAMETHASONE. [Concomitant]
     Active Substance: DEXAMETHASONE
  6. FLUOCINONIDE. [Concomitant]
     Active Substance: FLUOCINONIDE
  7. PREDNISONE. [Concomitant]
     Active Substance: PREDNISONE
  8. BETAMETH DIPROPIONATE [Concomitant]

REACTIONS (1)
  - Injection site mass [Not Recovered/Not Resolved]
